FAERS Safety Report 10025570 (Version 1)
Quarter: 2014Q1

REPORT INFORMATION
  Report Type: Spontaneous
  Country: US (occurrence: None)
  Receive Date: 20140319
  Receipt Date: 20140319
  Transmission Date: 20141002
  Serious: Yes (Hospitalization)
  Sender: FDA-Public Use
  Company Number: None

PATIENT
  Age: 62 Year
  Sex: Male
  Weight: 129.2 kg

DRUGS (1)
  1. HEPARIN [Suspect]
     Dosage: PER HOUR
     Route: 042
     Dates: start: 20140308, end: 20140310

REACTIONS (6)
  - Haematemesis [None]
  - Respiratory failure [None]
  - Hypoxia [None]
  - Duodenal ulcer [None]
  - Oesophagitis [None]
  - Abdominal discomfort [None]
